FAERS Safety Report 22074289 (Version 10)
Quarter: 2025Q1

REPORT INFORMATION
  Report Type: Spontaneous
  Country: US (occurrence: US)
  Receive Date: 20230308
  Receipt Date: 20250303
  Transmission Date: 20250408
  Serious: Yes (Hospitalization, Other)
  Sender: PFIZER
  Company Number: US-PFIZER INC-PV202300019823

PATIENT
  Age: 69 Year
  Sex: Female
  Weight: 53 kg

DRUGS (3)
  1. IBRANCE [Suspect]
     Active Substance: PALBOCICLIB
     Indication: Soft tissue sarcoma
     Route: 048
     Dates: start: 202211
  2. IBRANCE [Suspect]
     Active Substance: PALBOCICLIB
     Indication: Sarcoma
     Route: 048
     Dates: start: 202212, end: 202502
  3. LIPOSOMAL VITAMIN C [ASCORBIC ACID;SODIUM ASCORBATE] [Concomitant]
     Dates: start: 2019

REACTIONS (11)
  - Intestinal obstruction [Recovered/Resolved]
  - Neutropenia [Not Recovered/Not Resolved]
  - White blood cell count decreased [Not Recovered/Not Resolved]
  - Off label use [Not Recovered/Not Resolved]
  - Fatigue [Not Recovered/Not Resolved]
  - Red blood cell count decreased [Not Recovered/Not Resolved]
  - Platelet count decreased [Not Recovered/Not Resolved]
  - Infection [Not Recovered/Not Resolved]
  - Illness [Recovered/Resolved]
  - Decreased appetite [Recovering/Resolving]
  - Product prescribing issue [Unknown]

NARRATIVE: CASE EVENT DATE: 20220101
